FAERS Safety Report 9255521 (Version 1)
Quarter: 2013Q1

REPORT INFORMATION
  Report Type: Spontaneous
  Country: US (occurrence: None)
  Receive Date: 20121206
  Receipt Date: 20121206
  Transmission Date: 20140127
  Serious: Yes (Other)
  Sender: FDA-Public Use
  Company Number: 2012-14329

PATIENT
  Age: 58 Year
  Sex: Female

DRUGS (1)
  1. INFED [Suspect]
     Indication: ANAEMIA
     Dosage: 1.25 MG TEST DOSE AND PATIENT RECEIVED APPROX. 12.5 MG, INTRAVENOUS
     Route: 042
     Dates: start: 20120726

REACTIONS (7)
  - Throat irritation [None]
  - Cough [None]
  - Hypersensitivity [None]
  - Heart rate increased [None]
  - Blood pressure increased [None]
  - Hyperhidrosis [None]
  - Flushing [None]
